FAERS Safety Report 7466309-2 (Version None)
Quarter: 2011Q2

REPORT INFORMATION
  Report Type: 
  Country: None (occurrence: None)
  Receive Date: 20110509
  Receipt Date: 20100726
  Transmission Date: 20111010
  Serious: No
  Sender: FDA-Public Use
  Company Number: US-ALEXION-A201000889

PATIENT
  Sex: Male

DRUGS (4)
  1. SOLIRIS [Suspect]
     Indication: PAROXYSMAL NOCTURNAL HAEMOGLOBINURIA
     Dosage: 600 MG, QWX4
     Route: 042
     Dates: start: 20090701, end: 20090701
  2. FOLIC ACID [Concomitant]
     Dosage: 1 MG, BID
     Route: 048
  3. SOLIRIS [Suspect]
     Dosage: 900 MG, Q2W
     Route: 042
     Dates: start: 20090729
  4. LISINOPRIL [Suspect]
     Indication: HYPERTENSION
     Dosage: 5 MG, QD
     Route: 048

REACTIONS (5)
  - DYSPNOEA EXERTIONAL [None]
  - FATIGUE [None]
  - ABDOMINAL PAIN UPPER [None]
  - DIZZINESS [None]
  - BLOOD PRESSURE DECREASED [None]
